FAERS Safety Report 7042596-X (Version None)
Quarter: 2010Q4

REPORT INFORMATION
  Report Type: 
  Country: None (occurrence: None)
  Receive Date: 20101008
  Receipt Date: 20100929
  Transmission Date: 20110411
  Serious: Yes (Hospitalization, Other)
  Sender: FDA-Public Use
  Company Number: JPI-P-012435

PATIENT
  Age: 64 Year
  Sex: Male

DRUGS (3)
  1. XYREM [Suspect]
     Indication: CHRONIC FATIGUE SYNDROME
     Dosage: 6 GM (3 GM, 2 IN 1 D), ORAL
     Route: 048
     Dates: start: 20050201
  2. XYREM [Suspect]
     Indication: CHRONIC FATIGUE SYNDROME
     Dosage: 6 GM (3 GM, 2 IN 1 D), ORAL
     Route: 048
     Dates: start: 20100915
  3. MULTIPLE UNSPECIFIED MEDICATIONS [Concomitant]

REACTIONS (6)
  - ANAEMIA [None]
  - GENERALISED OEDEMA [None]
  - METASTASES TO BLADDER [None]
  - METASTASES TO LYMPH NODES [None]
  - PROSTATE CANCER METASTATIC [None]
  - URETERIC CANCER [None]
